FAERS Safety Report 8933837 (Version 1)
Quarter: 2012Q4

REPORT INFORMATION
  Report Type: 
  Country: FR (occurrence: FR)
  Receive Date: 20121129
  Receipt Date: 20121129
  Transmission Date: 20130627
  Serious: Yes (Other)
  Sender: FDA-Public Use
  Company Number: FR-GILEAD-2012-0065328

PATIENT
  Sex: Male

DRUGS (3)
  1. VIREAD [Suspect]
     Indication: HIV INFECTION
     Dosage: 1 DF, QD
     Route: 048
     Dates: start: 2003
  2. KALETRA [Concomitant]
     Dosage: UNK
     Route: 048
     Dates: start: 2003
  3. RETROVIR [Concomitant]
     Dosage: UNK
     Dates: start: 2003

REACTIONS (1)
  - Nephropathy [Not Recovered/Not Resolved]
